FAERS Safety Report 11157480 (Version 1)
Quarter: 2015Q2

REPORT INFORMATION
  Report Type: Spontaneous
  Country: SE (occurrence: SE)
  Receive Date: 20150603
  Receipt Date: 20150603
  Transmission Date: 20150821
  Serious: Yes (Other)
  Sender: FDA-Public Use
  Company Number: SE-ROCHE-1572468

PATIENT
  Sex: Male

DRUGS (2)
  1. MABTHERA [Suspect]
     Active Substance: RITUXIMAB
     Route: 041
     Dates: start: 20150527
  2. MABTHERA [Suspect]
     Active Substance: RITUXIMAB
     Indication: IMMUNOGLOBULIN G4 RELATED SCLEROSING DISEASE
     Route: 041
     Dates: start: 201409

REACTIONS (2)
  - Off label use [Unknown]
  - Macular oedema [Recovering/Resolving]

NARRATIVE: CASE EVENT DATE: 20150414
